FAERS Safety Report 10189248 (Version 1)
Quarter: 2014Q2

REPORT INFORMATION
  Report Type: Spontaneous
  Country: DE (occurrence: DE)
  Receive Date: 20140522
  Receipt Date: 20140522
  Transmission Date: 20141212
  Serious: Yes (Other)
  Sender: FDA-Public Use
  Company Number: GXKR2014DE001985

PATIENT
  Sex: 0

DRUGS (5)
  1. THIAMAZOLE [Suspect]
     Indication: BASEDOW^S DISEASE
     Dosage: 5 MG /DOSAGE REDUCTION FROM GW 31 TO 2.5 MG/D (16.2 TO 34.6 GW)
     Route: 048
     Dates: start: 20130520, end: 20130927
  2. PROPYCIL [Concomitant]
     Indication: BASEDOW^S DISEASE
     Dosage: 50 [MG/D ]
     Route: 048
     Dates: start: 20130427, end: 20130520
  3. THYROXIN [Concomitant]
     Indication: BASEDOW^S DISEASE
     Dosage: 88 [?G/D (BS 75 ?G/D) ]
     Route: 048
     Dates: start: 20130927, end: 20131023
  4. FEMIBION [Concomitant]
     Indication: VITAMIN SUPPLEMENTATION
     Route: 048
  5. CYTOTEC [Concomitant]
     Indication: LABOUR INDUCTION
     Route: 048

REACTIONS (1)
  - Foetal death [Recovered/Resolved]
